FAERS Safety Report 5677011-1 (Version None)
Quarter: 2008Q1

REPORT INFORMATION
  Report Type: 
  Country: None (occurrence: None)
  Receive Date: 20080324
  Receipt Date: 20080314
  Transmission Date: 20080703
  Serious: Yes (Other)
  Sender: FDA-Public Use
  Company Number: PHHY2008GB03333

PATIENT
  Sex: Male

DRUGS (4)
  1. GLEEVEC [Suspect]
     Indication: CHRONIC MYELOID LEUKAEMIA
     Dosage: 500 MG, UNK
     Route: 048
  2. SIMVASTATIN [Concomitant]
  3. PLAVIX [Concomitant]
  4. PRAVASTATIN [Concomitant]

REACTIONS (6)
  - EAR DISCOMFORT [None]
  - MALAISE [None]
  - MYOCARDIAL INFARCTION [None]
  - NAUSEA [None]
  - PALPITATIONS [None]
  - STENT PLACEMENT [None]
